FAERS Safety Report 11021661 (Version 2)
Quarter: 2015Q2

REPORT INFORMATION
  Report Type: Spontaneous
  Country: US (occurrence: US)
  Receive Date: 20150413
  Receipt Date: 20150428
  Transmission Date: 20150821
  Serious: Yes (Hospitalization)
  Sender: FDA-Public Use
  Company Number: US-BAYER-2015-119576

PATIENT
  Age: 35 Year
  Sex: Female
  Weight: 117.46 kg

DRUGS (1)
  1. MIRENA [Suspect]
     Active Substance: LEVONORGESTREL
     Indication: CONTRACEPTION
     Dosage: 20 MCG/24HR, CONT
     Route: 015
     Dates: start: 20080619, end: 20130621

REACTIONS (6)
  - Device issue [None]
  - Uterine perforation [None]
  - Pain [None]
  - Emotional distress [None]
  - Depression [None]
  - Injury [None]

NARRATIVE: CASE EVENT DATE: 201303
